FAERS Safety Report 5289463-X (Version None)
Quarter: 2007Q2

REPORT INFORMATION
  Report Type: 
  Country: None (occurrence: None)
  Receive Date: 20070406
  Receipt Date: 20070327
  Transmission Date: 20071010
  Serious: Yes (Other)
  Sender: FDA-Public Use
  Company Number: PHBS2007BR04959

PATIENT
  Sex: Female
  Weight: 77 kg

DRUGS (3)
  1. TRILEPTAL [Suspect]
     Indication: HEAD DISCOMFORT
     Dosage: 0.5 TABLET/DAY
     Route: 048
  2. TRILEPTAL [Suspect]
     Dosage: 0.5 TABLET, TID
     Route: 048
  3. METFORMIN [Concomitant]
     Indication: DIABETES MELLITUS
     Dosage: 1 TABLET AFTER LUNCH
     Route: 048

REACTIONS (4)
  - CRYING [None]
  - DEPRESSION [None]
  - DRUG WITHDRAWAL SYNDROME [None]
  - SELF INJURIOUS BEHAVIOUR [None]
